FAERS Safety Report 13566342 (Version 5)
Quarter: 2018Q1

REPORT INFORMATION
  Report Type: Report from Study
  Country: None (occurrence: US)
  Receive Date: 20170521
  Receipt Date: 20180125
  Transmission Date: 20180508
  Serious: Yes (Hospitalization)
  Sender: FDA-Public Use
  Company Number: US-ABBVIE-17K-163-1979626-00

PATIENT
  Age: 42 Year
  Sex: Female
  Weight: 61.29 kg

DRUGS (1)
  1. HUMIRA [Suspect]
     Active Substance: ADALIMUMAB
     Indication: CROHN^S DISEASE
     Route: 058
     Dates: start: 201507

REACTIONS (8)
  - Blood iron decreased [Not Recovered/Not Resolved]
  - Hypotension [Unknown]
  - Small intestinal ulcer haemorrhage [Not Recovered/Not Resolved]
  - Abdominal pain [Unknown]
  - Drug effect decreased [Not Recovered/Not Resolved]
  - Drug specific antibody [Unknown]
  - Fatigue [Unknown]
  - Diarrhoea [Unknown]

NARRATIVE: CASE EVENT DATE: 201705
